FAERS Safety Report 9155231 (Version 2)
Quarter: 2013Q3

REPORT INFORMATION
  Report Type: Report from Study
  Country: US (occurrence: US)
  Receive Date: 20130311
  Receipt Date: 20130710
  Transmission Date: 20140515
  Serious: Yes (Hospitalization)
  Sender: FDA-Public Use
  Company Number: US-CELGENEUS-163-21880-13030229

PATIENT
  Age: 74 Year
  Sex: Male

DRUGS (17)
  1. REVLIMID [Suspect]
     Indication: ACUTE MYELOID LEUKAEMIA
     Dosage: 50 MILLIGRAM
     Route: 048
     Dates: start: 20130206
  2. VIDAZA [Suspect]
     Indication: ACUTE MYELOID LEUKAEMIA
     Route: 065
     Dates: start: 20130206, end: 20130212
  3. LEVAQUIN [Concomitant]
     Indication: PNEUMONIA
     Dosage: 500 MILLIGRAM
     Route: 065
     Dates: start: 20130212
  4. ANTIBIOTICS [Concomitant]
     Indication: INFECTION
     Route: 065
  5. LORAZEPAM [Concomitant]
     Indication: NAUSEA
     Dosage: 3 MILLIGRAM
     Route: 048
     Dates: start: 20130223, end: 20130224
  6. COMPAZINE [Concomitant]
     Indication: NAUSEA
     Dosage: 30 MILLIGRAM
     Route: 048
     Dates: start: 20130223, end: 20130224
  7. COMPAZINE [Concomitant]
     Indication: VOMITING
     Route: 048
  8. ZOFRAN [Concomitant]
     Indication: NAUSEA
     Dosage: 32 MILLIGRAM
     Route: 041
     Dates: start: 20130223, end: 20130224
  9. ZOFRAN [Concomitant]
     Indication: VOMITING
     Route: 041
  10. MAGNESIUM SULFATE [Concomitant]
     Indication: ELECTROLYTE SUBSTITUTION THERAPY
     Dosage: 6 MILLIGRAM
     Route: 048
     Dates: start: 20130224, end: 20130224
  11. OXYGEN [Concomitant]
     Indication: HYPOXIA
     Dosage: 0-1.5 LITERS
     Route: 045
     Dates: start: 20130223, end: 20130224
  12. FENTANYL [Concomitant]
     Indication: PAIN
     Dosage: 8.3333 MICROGRAM
     Route: 062
     Dates: start: 20130221
  13. CALCITROL [Concomitant]
     Indication: SUPPLEMENTATION THERAPY
     Dosage: .0714 MICROGRAM
     Route: 048
     Dates: start: 20130208
  14. ACYCLOVIR [Concomitant]
     Indication: ANTIVIRAL PROPHYLAXIS
     Route: 048
     Dates: start: 20130103
  15. DIFLUCAN [Concomitant]
     Indication: ANTIFUNGAL PROPHYLAXIS
     Route: 048
     Dates: start: 20130212
  16. COZAAR [Concomitant]
     Indication: HYPERTENSION
     Route: 048
     Dates: start: 20130208
  17. COREG [Concomitant]
     Indication: HYPERTENSION
     Route: 048
     Dates: start: 20130208

REACTIONS (1)
  - Syncope [Recovered/Resolved]
